FAERS Safety Report 4972181-2 (Version None)
Quarter: 2006Q2

REPORT INFORMATION
  Report Type: 
  Country: None (occurrence: None)
  Receive Date: 20060413
  Receipt Date: 20060407
  Transmission Date: 20061013
  Serious: Yes (Hospitalization)
  Sender: FDA-Public Use
  Company Number: US-GLAXOSMITHKLINE-A0601437A

PATIENT
  Age: 47 Year
  Sex: Female

DRUGS (5)
  1. RELAFEN [Suspect]
     Indication: PAIN IN EXTREMITY
     Route: 048
     Dates: start: 20050315, end: 20050404
  2. ATENOLOL [Concomitant]
  3. LISINOPRIL [Concomitant]
  4. CLARITIN [Concomitant]
     Indication: SEASONAL ALLERGY
     Dates: end: 20050403
  5. ATARAX [Concomitant]
     Indication: SEASONAL ALLERGY
     Dates: start: 20050403

REACTIONS (35)
  - ACNE [None]
  - ANAEMIA [None]
  - ANXIETY [None]
  - ASTHENIA [None]
  - BLISTER [None]
  - BURNS SECOND DEGREE [None]
  - BURNS THIRD DEGREE [None]
  - COMA [None]
  - DEPRESSION [None]
  - DIABETES MELLITUS [None]
  - DYSPNOEA [None]
  - FATIGUE [None]
  - HYPERAESTHESIA [None]
  - HYPERSENSITIVITY [None]
  - HYPOAESTHESIA [None]
  - LETHARGY [None]
  - LOCAL SWELLING [None]
  - LUNG DISORDER [None]
  - MUCOSAL HAEMORRHAGE [None]
  - MUCOUS MEMBRANE DISORDER [None]
  - ORAL PAIN [None]
  - PAIN [None]
  - PAIN IN EXTREMITY [None]
  - PHOTOSENSITIVITY REACTION [None]
  - PNEUMONIA [None]
  - PRURITUS [None]
  - RASH [None]
  - RESPIRATORY DISORDER [None]
  - SCAR [None]
  - STAPHYLOCOCCAL BACTERAEMIA [None]
  - STAPHYLOCOCCAL INFECTION [None]
  - SWELLING [None]
  - SWELLING FACE [None]
  - TOXIC EPIDERMAL NECROLYSIS [None]
  - URINARY INCONTINENCE [None]
